FAERS Safety Report 8335526-1 (Version None)
Quarter: 2012Q2

REPORT INFORMATION
  Report Type: 
  Country: None (occurrence: None)
  Receive Date: 20120503
  Receipt Date: 20120423
  Transmission Date: 20120825
  Serious: Yes (Other)
  Sender: FDA-Public Use
  Company Number: US-BAXTER-2012BAX004117

PATIENT
  Age: 51 Year
  Sex: Male

DRUGS (5)
  1. FLUDARABINE PHOSPHATE [Suspect]
     Dosage: DAY 2-4 OF CENERSEN
  2. SULFAMETHOXAZOLE AND TRIMETHOPRIM [Concomitant]
     Indication: PROPHYLAXIS
  3. ALLOPURINOL [Concomitant]
     Indication: PROPHYLAXIS
  4. CYCLOPHOSPHAMIDE [Suspect]
     Dosage: DAY 2-4 OF CENERSEN
  5. RITUXIMAB [Suspect]
     Dosage: ON DAY 2 OF CENERSEN

REACTIONS (1)
  - METASTASIS [None]
